FAERS Safety Report 17468243 (Version 6)
Quarter: 2020Q2

REPORT INFORMATION
  Report Type: Report from Study
  Country: CA (occurrence: CA)
  Receive Date: 20200227
  Receipt Date: 20200520
  Transmission Date: 20200713
  Serious: Yes (Hospitalization)
  Sender: FDA-Public Use
  Company Number: CA-JNJFOC-20200213974

PATIENT
  Age: 57 Year
  Sex: Male
  Weight: 133.7 kg

DRUGS (5)
  1. REMICADE [Suspect]
     Active Substance: INFLIXIMAB
     Indication: HIDRADENITIS
     Route: 042
     Dates: start: 20190510
  2. REMICADE [Suspect]
     Active Substance: INFLIXIMAB
     Route: 042
  3. REMICADE [Suspect]
     Active Substance: INFLIXIMAB
     Route: 042
  4. REMICADE [Suspect]
     Active Substance: INFLIXIMAB
     Route: 042
     Dates: start: 20190510
  5. PREDNISONE. [Concomitant]
     Active Substance: PREDNISONE
     Indication: HIDRADENITIS

REACTIONS (5)
  - Conjunctivitis [Recovered/Resolved]
  - Eye infection [Not Recovered/Not Resolved]
  - Hidradenitis [Recovering/Resolving]
  - Drug ineffective [Unknown]
  - Hordeolum [Unknown]

NARRATIVE: CASE EVENT DATE: 2020
